FAERS Safety Report 8117769 (Version 3)
Quarter: 2013Q2

REPORT INFORMATION
  Report Type: Spontaneous
  Country: US (occurrence: US)
  Receive Date: 20110901
  Receipt Date: 20130401
  Transmission Date: 20140414
  Serious: Yes (Life-Threatening, Hospitalization)
  Sender: FDA-Public Use
  Company Number: US-BAYER-2011-079748

PATIENT
  Age: 34 Year
  Sex: Female
  Weight: 63.5 kg

DRUGS (5)
  1. YASMIN [Suspect]
     Dosage: UNK
     Dates: start: 200411, end: 200612
  2. FENFLURAMINE W/PHENTERMINE [Concomitant]
  3. CIPRO [Concomitant]
  4. ASPIRIN [Concomitant]
     Dosage: DAILY
  5. DARVOCET [Concomitant]

REACTIONS (6)
  - Cerebrovascular accident [None]
  - Thrombosis [None]
  - Retinal artery occlusion [None]
  - Injury [None]
  - Pain [None]
  - Amaurosis fugax [None]
